FAERS Safety Report 8296488-9 (Version None)
Quarter: 2012Q2

REPORT INFORMATION
  Report Type: 
  Country: None (occurrence: None)
  Receive Date: 20120418
  Receipt Date: 20120415
  Transmission Date: 20120825
  Serious: Yes (Hospitalization, Other)
  Sender: FDA-Public Use
  Company Number: BR-ABBOTT-11P-020-0880232-00

PATIENT
  Sex: Female
  Weight: 87 kg

DRUGS (8)
  1. BENDROFLUAZIDE [Concomitant]
     Indication: HYPERTENSION
     Route: 048
  2. OMEPRAZOLE [Concomitant]
     Indication: GASTROINTESTINAL DISORDER
     Route: 048
  3. METHOTREXATE [Concomitant]
     Indication: RHEUMATOID ARTHRITIS
     Route: 048
  4. HUMIRA [Suspect]
     Indication: RHEUMATOID ARTHRITIS
     Route: 058
     Dates: end: 20111101
  5. MELOXICAM [Concomitant]
     Indication: RHEUMATOID ARTHRITIS
     Route: 048
  6. METHOTREXATE [Concomitant]
     Indication: PRODUCT USED FOR UNKNOWN INDICATION
  7. LISINOPRIL [Concomitant]
     Indication: HYPERTENSION
     Route: 048
  8. OMEPRAZOLE [Concomitant]
     Indication: PROPHYLAXIS

REACTIONS (4)
  - CHEST PAIN [None]
  - PNEUMONIA [None]
  - HOSPITALISATION [None]
  - LUNG NEOPLASM MALIGNANT [None]
